FAERS Safety Report 5747675-2 (Version None)
Quarter: 2008Q2

REPORT INFORMATION
  Report Type: 
  Country: None (occurrence: None)
  Receive Date: 20080523
  Receipt Date: 20080515
  Transmission Date: 20081010
  Serious: Yes (Other)
  Sender: FDA-Public Use
  Company Number: CN-ASTRAZENECA-2008AP03799

PATIENT
  Age: 32 Year
  Sex: Female
  Weight: 67 kg

DRUGS (4)
  1. LIDOCAINE [Suspect]
     Indication: ANAESTHESIA
     Dosage: CONTAINING 1/200000 ADRENALINE
     Route: 008
  2. BUPIVACAINE [Suspect]
     Indication: LOCAL ANAESTHESIA
     Route: 008
  3. FENTANYL [Suspect]
     Dosage: DILUTED IN 100 ML NORMAL SALINE
  4. DROPERIDOL [Suspect]
     Dosage: DILUTED IN 100 ML NORMAL SALINE

REACTIONS (1)
  - FEMORAL NERVE INJURY [None]
